FAERS Safety Report 17386862 (Version 1)
Quarter: 2020Q1

REPORT INFORMATION
  Report Type: Spontaneous
  Country: ES (occurrence: ES)
  Receive Date: 20200206
  Receipt Date: 20200206
  Transmission Date: 20200409
  Serious: Yes (Other)
  Sender: FDA-Public Use
  Company Number: ES-PFIZER INC-2020051385

PATIENT
  Age: 29 Year
  Sex: Male

DRUGS (6)
  1. KETAMINE HCL [Suspect]
     Active Substance: KETAMINE HYDROCHLORIDE
     Dosage: UNK
     Route: 045
     Dates: start: 2007
  2. LORMETAZEPAM [Concomitant]
     Active Substance: LORMETAZEPAM
     Dosage: 2 MG, 1X/DAY
     Route: 048
  3. RIVOTRIL [Concomitant]
     Active Substance: CLONAZEPAM
     Dosage: 2 MG, 4X/DAY (EVERY 6 HOURS)
     Route: 048
  4. QUETIAPINE. [Concomitant]
     Active Substance: QUETIAPINE
     Dosage: 100 MG, 3X/DAY (EVERY 8 HOURS)
     Route: 048
  5. ZYPREXA [Concomitant]
     Active Substance: OLANZAPINE
     Dosage: 5 MG, 2X/DAY (EVERY 12 HOURS)
     Route: 048
  6. GABAPENTIN. [Concomitant]
     Active Substance: GABAPENTIN
     Dosage: 600 MG, 3X/DAY (EVERY 8 HOURS)
     Route: 048

REACTIONS (6)
  - Dysuria [Not Recovered/Not Resolved]
  - Off label use [Unknown]
  - Urinary incontinence [Not Recovered/Not Resolved]
  - Drug abuse [Not Recovered/Not Resolved]
  - Product use issue [Unknown]
  - Pollakiuria [Not Recovered/Not Resolved]

NARRATIVE: CASE EVENT DATE: 2007
